FAERS Safety Report 4543772-8 (Version None)
Quarter: 2005Q1

REPORT INFORMATION
  Report Type: 
  Country: None (occurrence: None)
  Receive Date: 20050103
  Receipt Date: 20041117
  Transmission Date: 20050727
  Serious: Yes (Death)
  Sender: FDA-Public Use
  Company Number: US-MERCK-0411USA02868

PATIENT
  Age: 72 Year
  Sex: Female
  Weight: 67 kg

DRUGS (7)
  1. VIOXX [Suspect]
     Indication: OSTEOARTHRITIS
     Route: 048
     Dates: start: 20020101
  2. VIOXX [Suspect]
     Route: 048
     Dates: start: 20010306
  3. VIOXX [Suspect]
     Route: 048
     Dates: start: 20031101
  4. VIOXX [Suspect]
     Indication: TEMPOROMANDIBULAR JOINT SYNDROME
     Route: 048
     Dates: start: 20020101
  5. VIOXX [Suspect]
     Route: 048
     Dates: start: 20010306
  6. VIOXX [Suspect]
     Route: 048
     Dates: start: 20031101
  7. NORVASC [Concomitant]
     Route: 065

REACTIONS (17)
  - BRONCHITIS [None]
  - BRONCHOSPASM [None]
  - CARDIO-RESPIRATORY ARREST [None]
  - CORONARY ARTERY DISEASE [None]
  - DEHYDRATION [None]
  - DYSPNOEA [None]
  - HAEMOLYTIC ANAEMIA [None]
  - HYPERLIPIDAEMIA [None]
  - HYPERTENSION [None]
  - HYPOKALAEMIA [None]
  - HYPOVOLAEMIA [None]
  - INTENTION TREMOR [None]
  - OEDEMA [None]
  - ORTHOSTATIC HYPOTENSION [None]
  - SUDDEN DEATH [None]
  - THERAPEUTIC RESPONSE DECREASED [None]
  - UPPER RESPIRATORY TRACT INFECTION [None]
